FAERS Safety Report 18779851 (Version 1)
Quarter: 2021Q1

REPORT INFORMATION
  Report Type: Report from Study
  Country: DE (occurrence: DE)
  Receive Date: 20210125
  Receipt Date: 20210125
  Transmission Date: 20210419
  Serious: Yes (Death)
  Sender: FDA-Public Use
  Company Number: DE-ROCHE-2746496

PATIENT
  Age: 70 Year
  Sex: Female
  Weight: 68 kg

DRUGS (8)
  1. ELIQUIS [Concomitant]
     Active Substance: APIXABAN
     Indication: HEPATIC VEIN THROMBOSIS
     Route: 048
     Dates: start: 20140630
  2. BLINDED ATEZOLIZUMAB [Suspect]
     Active Substance: ATEZOLIZUMAB
     Indication: OVARIAN CANCER
     Dosage: THE DATE OF LAST DOSE PRIOR TO SAE: 27/OCT/2020?DAY 1 AND DAY 15
     Route: 041
     Dates: start: 20200121
  3. TAZOBAC [Concomitant]
     Active Substance: PIPERACILLIN SODIUM\TAZOBACTAM SODIUM
     Indication: URINARY TRACT INFECTION
     Route: 042
     Dates: start: 20200107
  4. PREDNISOLON [Concomitant]
     Active Substance: PREDNISOLONE
     Indication: AUTOIMMUNE PANCREATITIS
     Route: 048
     Dates: start: 20201209, end: 202101
  5. PREDNISOLON [Concomitant]
     Active Substance: PREDNISOLONE
     Route: 048
     Dates: start: 20201125, end: 20201208
  6. PREDNISOLON [Concomitant]
     Active Substance: PREDNISOLONE
     Route: 048
     Dates: start: 20201111, end: 20201120
  7. PREDNISOLON [Concomitant]
     Active Substance: PREDNISOLONE
     Route: 048
     Dates: start: 202101, end: 202101
  8. BEVACIZUMAB. [Suspect]
     Active Substance: BEVACIZUMAB
     Indication: OVARIAN CANCER
     Dosage: THE DATE OF LAST DOSE PRIOR TO SAE: 18/AUG/2020?DAY 1 AND DAY 15
     Route: 042
     Dates: start: 20200121

REACTIONS (1)
  - Pneumonia [Fatal]

NARRATIVE: CASE EVENT DATE: 20210110
